FAERS Safety Report 19272521 (Version 1)
Quarter: 2021Q2

REPORT INFORMATION
  Report Type: Spontaneous
  Country: US (occurrence: US)
  Receive Date: 20210518
  Receipt Date: 20210518
  Transmission Date: 20210717
  Serious: Yes (Death, Other)
  Sender: FDA-Public Use
  Company Number: NVSC2021US109717

PATIENT
  Age: 48 Year
  Sex: Female

DRUGS (1)
  1. VOTRIENT [Suspect]
     Active Substance: PAZOPANIB HYDROCHLORIDE
     Indication: RENAL CANCER
     Dosage: UNK
     Route: 065

REACTIONS (12)
  - Muscle spasms [Unknown]
  - Oropharyngeal pain [Unknown]
  - Weight decreased [Unknown]
  - Oral pain [Unknown]
  - Decreased appetite [Unknown]
  - Nausea [Unknown]
  - Death [Fatal]
  - Pain in extremity [Unknown]
  - Vomiting [Unknown]
  - Disturbance in attention [Unknown]
  - Memory impairment [Unknown]
  - Skin exfoliation [Unknown]

NARRATIVE: CASE EVENT DATE: 20210319
